FAERS Safety Report 4529990-3 (Version None)
Quarter: 2004Q4

REPORT INFORMATION
  Report Type: 
  Country: None (occurrence: None)
  Receive Date: 20041217
  Receipt Date: 20041206
  Transmission Date: 20050328
  Serious: Yes (Hospitalization, Other)
  Sender: FDA-Public Use
  Company Number: DE-JNJFOC-20041106292

PATIENT
  Sex: Female

DRUGS (14)
  1. DURAGESIC [Suspect]
     Route: 062
  2. DURAGESIC [Suspect]
     Route: 062
  3. DICLOFENAC [Concomitant]
  4. CIPRAMIL [Concomitant]
     Indication: DEPRESSION
     Route: 049
  5. FUROSEMIDE [Concomitant]
     Route: 049
  6. SPIRONOLACTONE [Concomitant]
     Route: 049
  7. DICLAC DISPERS [Concomitant]
     Indication: PAIN
  8. PANTOZOL [Concomitant]
     Indication: INFECTION PROPHYLAXIS
     Route: 049
  9. OXAZEPAM [Concomitant]
     Indication: INSOMNIA
     Route: 049
  10. CALCIUM [Concomitant]
     Indication: OSTEOPOROSIS
     Route: 049
  11. MOVICOL [Concomitant]
     Route: 049
  12. MOVICOL [Concomitant]
     Route: 049
  13. MOVICOL [Concomitant]
     Route: 049
  14. MOVICOL [Concomitant]
     Indication: CONSTIPATION
     Route: 049

REACTIONS (3)
  - DISTURBANCE IN ATTENTION [None]
  - RENAL FAILURE [None]
  - RESPIRATORY DEPRESSION [None]
